FAERS Safety Report 6452065-3 (Version None)
Quarter: 2009Q4

REPORT INFORMATION
  Report Type: 
  Country: None (occurrence: None)
  Receive Date: 20091123
  Receipt Date: 20091113
  Transmission Date: 20100525
  Serious: Yes (Disabling)
  Sender: FDA-Public Use
  Company Number: FR-BAXTER-2009BH017463

PATIENT
  Age: 54 Year
  Sex: Female

DRUGS (1)
  1. ENDOXAN BAXTER [Suspect]
     Indication: BREAST CANCER
     Route: 065
     Dates: start: 20090401, end: 20090601

REACTIONS (4)
  - BLADDER PAIN [None]
  - DYSURIA [None]
  - INSOMNIA [None]
  - POLLAKIURIA [None]
